FAERS Safety Report 19913939 (Version 2)
Quarter: 2021Q4

REPORT INFORMATION
  Report Type: Spontaneous
  Country: US (occurrence: US)
  Receive Date: 20211004
  Receipt Date: 20211005
  Transmission Date: 20220303
  Serious: No
  Sender: FDA-Public Use
  Company Number: US-SUNOVION-2021SUN003762

PATIENT
  Age: 61 Year
  Sex: Female

DRUGS (1)
  1. LATUDA [Suspect]
     Active Substance: LURASIDONE HYDROCHLORIDE
     Dosage: 60 MG
     Route: 048

REACTIONS (2)
  - Malaise [Unknown]
  - Therapy cessation [Unknown]
